FAERS Safety Report 9926177 (Version 1)
Quarter: 2014Q1

REPORT INFORMATION
  Report Type: Spontaneous
  Country: DE (occurrence: DE)
  Receive Date: 20140226
  Receipt Date: 20140226
  Transmission Date: 20141002
  Serious: Yes (Other)
  Sender: FDA-Public Use
  Company Number: DE-PFIZER INC-2014050595

PATIENT
  Age: 29 Year
  Sex: Female
  Weight: 61 kg

DRUGS (5)
  1. SERTRALINE HCL [Suspect]
     Indication: DEPRESSION
     Dosage: 100 MG, ONCE A DAY (0 - 34.5 GESTATIONAL WEEK)
     Route: 048
     Dates: start: 20120407, end: 20121206
  2. LAMOTRIGINE [Suspect]
     Indication: BIPOLAR DISORDER
     Dosage: 200 MG, ONCE A DAY
     Route: 048
     Dates: start: 20120407, end: 20121206
  3. LAMOTRIGINE [Suspect]
     Dosage: HIGHER DOSE OF 200
     Route: 048
  4. L-THYROXIN HENNING [Concomitant]
     Indication: AUTOIMMUNE THYROIDITIS
     Dosage: 75 UG, ONCE A DAY
     Route: 048
     Dates: start: 20120407, end: 20121206
  5. CORDES BPO 5 [Concomitant]
     Indication: ACNE
     Dosage: UNK
     Route: 003
     Dates: start: 20120407, end: 20120518

REACTIONS (3)
  - Pre-eclampsia [Unknown]
  - Eclampsia [Unknown]
  - Headache [Unknown]
